FAERS Safety Report 8006827-1 (Version None)
Quarter: 2011Q4

REPORT INFORMATION
  Report Type: 
  Country: None (occurrence: None)
  Receive Date: 20111227
  Receipt Date: 20111222
  Transmission Date: 20120403
  Serious: Yes (Life-Threatening, Hospitalization, Other)
  Sender: FDA-Public Use
  Company Number: FR-JNJFOC-20110905273

PATIENT
  Age: 41 Year
  Sex: Female

DRUGS (10)
  1. TERCIAN [Suspect]
     Indication: PRODUCT USED FOR UNKNOWN INDICATION
     Route: 065
     Dates: start: 20110606, end: 20110630
  2. ZYPREXA [Suspect]
     Indication: PRODUCT USED FOR UNKNOWN INDICATION
     Route: 065
     Dates: start: 20110430
  3. ZYPREXA [Suspect]
     Route: 065
     Dates: start: 20110620, end: 20110704
  4. HALDOL [Suspect]
     Indication: PRODUCT USED FOR UNKNOWN INDICATION
     Route: 065
     Dates: start: 20110620, end: 20110630
  5. LITHIUM CARBONATE [Suspect]
     Indication: PRODUCT USED FOR UNKNOWN INDICATION
     Route: 048
     Dates: start: 20110606, end: 20110703
  6. DEPAKOTE [Suspect]
     Indication: PRODUCT USED FOR UNKNOWN INDICATION
     Route: 048
     Dates: start: 20110622, end: 20110627
  7. TERCIAN [Suspect]
     Route: 065
     Dates: start: 20110811, end: 20110816
  8. DEPAKOTE [Suspect]
     Route: 048
     Dates: start: 20110430
  9. IMOVANE [Suspect]
     Indication: PRODUCT USED FOR UNKNOWN INDICATION
     Route: 065
     Dates: start: 20110606
  10. TRIHEXYPHENIDYL HYDROCHLORIDE [Suspect]
     Indication: PRODUCT USED FOR UNKNOWN INDICATION
     Route: 065
     Dates: start: 20110615, end: 20110704

REACTIONS (4)
  - PANCYTOPENIA [None]
  - AGRANULOCYTOSIS [None]
  - VENTRICULAR FIBRILLATION [None]
  - DRUG RASH WITH EOSINOPHILIA AND SYSTEMIC SYMPTOMS [None]
